FAERS Safety Report 6629662-5 (Version None)
Quarter: 2010Q1

REPORT INFORMATION
  Report Type: 
  Country: None (occurrence: None)
  Receive Date: 20100311
  Receipt Date: 20100308
  Transmission Date: 20100710
  Serious: Yes (Hospitalization)
  Sender: FDA-Public Use
  Company Number: US-GILEAD-2010-0027541

PATIENT
  Sex: Female
  Weight: 62.5 kg

DRUGS (15)
  1. LETAIRIS [Suspect]
     Indication: PULMONARY ARTERIAL HYPERTENSION
     Route: 048
     Dates: start: 20080321
  2. PLAVIX [Concomitant]
  3. LASIX [Concomitant]
  4. RAMIPRIL [Concomitant]
  5. ISOSORB DIN [Concomitant]
  6. DURAGESIC DIS [Concomitant]
  7. PERCOCET [Concomitant]
  8. ADVAIR DISKU [Concomitant]
  9. SPIRIVA [Concomitant]
  10. LIPITOR [Concomitant]
  11. JANUVIA [Concomitant]
  12. XANAX [Concomitant]
  13. PROTONIX [Concomitant]
  14. PREDNISONE [Concomitant]
  15. KLOR-CON [Concomitant]

REACTIONS (2)
  - ANAEMIA [None]
  - URINARY TRACT INFECTION [None]
